FAERS Safety Report 5155505-5 (Version None)
Quarter: 2006Q4

REPORT INFORMATION
  Report Type: 
  Country: None (occurrence: None)
  Receive Date: 20061114
  Receipt Date: 20061013
  Transmission Date: 20070319
  Serious: Yes (Other)
  Sender: FDA-Public Use
  Company Number: 2006126909

PATIENT
  Sex: Male

DRUGS (3)
  1. CHANTIX [Suspect]
     Indication: SMOKING CESSATION THERAPY
     Dates: start: 20061007
  2. KEFLEX [Suspect]
     Indication: INFECTION
  3. VERAPAMIL [Concomitant]

REACTIONS (3)
  - ERYTHEMA [None]
  - SWOLLEN TONGUE [None]
  - URTICARIA [None]
